FAERS Safety Report 17241059 (Version 2)
Quarter: 2020Q1

REPORT INFORMATION
  Report Type: Spontaneous
  Country: IN (occurrence: IN)
  Receive Date: 20200107
  Receipt Date: 20200207
  Transmission Date: 20200409
  Serious: Yes (Hospitalization)
  Sender: FDA-Public Use
  Company Number: IN-B.I. PHARMACEUTICALS,INC./RIDGEFIELD-2020-BI-000795

PATIENT
  Age: 71 Year

DRUGS (1)
  1. PRADAXA [Suspect]
     Active Substance: DABIGATRAN ETEXILATE MESYLATE
     Indication: CEREBROVASCULAR ACCIDENT
     Dosage: DOSE-150
     Route: 065
     Dates: start: 20191126, end: 20200106

REACTIONS (3)
  - Haematochezia [Recovered/Resolved]
  - Adenocarcinoma gastric [Unknown]
  - Epistaxis [Unknown]

NARRATIVE: CASE EVENT DATE: 20200105
